FAERS Safety Report 19499930 (Version 1)
Quarter: 2021Q3

REPORT INFORMATION
  Report Type: Report from Study
  Country: CN (occurrence: CN)
  Receive Date: 20210706
  Receipt Date: 20210706
  Transmission Date: 20211014
  Serious: Yes (Hospitalization, Other)
  Sender: FDA-Public Use
  Company Number: NVSC2021CN144391

PATIENT
  Age: 56 Year
  Sex: Female

DRUGS (4)
  1. EVEROLIMUS. [Suspect]
     Active Substance: EVEROLIMUS
     Indication: BREAST CANCER
     Dosage: 10 MG, QD
     Route: 048
     Dates: start: 20210302
  2. PACLITAXEL ALBUMIN [Suspect]
     Active Substance: PACLITAXEL
     Dosage: 119 MG (IN 1ST, 8TH, 15TH OF EVERY CYCLE AND 4 WEEKS WAS A CYCLE)
     Route: 042
     Dates: start: 20210610
  3. PACLITAXEL ALBUMIN [Suspect]
     Active Substance: PACLITAXEL
     Indication: BREAST CANCER
     Dosage: 159 MG (IN 1ST, 8TH, 15TH OF EVERY CYCLE AND 4 WEEKS WAS A CYCLE)
     Route: 042
     Dates: start: 20210302
  4. EVEROLIMUS. [Suspect]
     Active Substance: EVEROLIMUS
     Dosage: 5 MG, QD
     Route: 048
     Dates: start: 20210610

REACTIONS (5)
  - Asthenia [Unknown]
  - Pneumonia [Unknown]
  - Hyperpyrexia [Unknown]
  - Decreased appetite [Unknown]
  - Cough [Unknown]

NARRATIVE: CASE EVENT DATE: 20210609
